FAERS Safety Report 15313045 (Version 1)
Quarter: 2018Q3

REPORT INFORMATION
  Report Type: Spontaneous
  Country: US (occurrence: US)
  Receive Date: 20180814
  Receipt Date: 20180814
  Transmission Date: 20181010
  Serious: Yes (Life-Threatening, Disabling)
  Sender: FDA-Public Use
  Company Number: None

PATIENT
  Age: 32 Year
  Sex: Male
  Weight: 92.25 kg

DRUGS (1)
  1. CHANTIX [Suspect]
     Active Substance: VARENICLINE TARTRATE
     Indication: SMOKING CESSATION THERAPY
     Dosage: ?          QUANTITY:120 TABLET(S);?
     Route: 048
     Dates: start: 20180703, end: 20180803

REACTIONS (4)
  - Nightmare [None]
  - Vomiting [None]
  - Abdominal discomfort [None]
  - Suicidal ideation [None]

NARRATIVE: CASE EVENT DATE: 20180717
